FAERS Safety Report 5388807-8 (Version None)
Quarter: 2007Q3

REPORT INFORMATION
  Report Type: 
  Country: None (occurrence: None)
  Receive Date: 20070712
  Receipt Date: 20070702
  Transmission Date: 20080115
  Serious: Yes (Hospitalization)
  Sender: FDA-Public Use
  Company Number: 2007BI012757

PATIENT
  Age: 63 Year
  Sex: Female

DRUGS (17)
  1. AVONEX [Suspect]
     Indication: MULTIPLE SCLEROSIS
     Dosage: 30 UG; QW; IM
     Route: 030
     Dates: start: 19990401
  2. ATENOLOL [Concomitant]
  3. PRILOSEC [Concomitant]
  4. DETROL LA [Concomitant]
  5. KLONOPIN [Concomitant]
  6. MULTI-VITAMIN [Concomitant]
  7. VITAMIN B-12 [Concomitant]
  8. VITAMIN B6 [Concomitant]
  9. PROVIGIL [Concomitant]
  10. CLARINEX [Concomitant]
  11. NASONEX [Concomitant]
  12. SYNTHROID [Concomitant]
  13. VITAMIN D [Concomitant]
  14. CELEXA [Concomitant]
  15. POTASSIUM CHLORIDE [Concomitant]
  16. IRON [Concomitant]
  17. VIVILLE-DOT [Concomitant]

REACTIONS (3)
  - LARYNGEAL OEDEMA [None]
  - POST PROCEDURAL COMPLICATION [None]
  - THYROID CANCER [None]
